FAERS Safety Report 9670193 (Version 1)
Quarter: 2013Q4

REPORT INFORMATION
  Report Type: Spontaneous
  Country: US (occurrence: None)
  Receive Date: 20131104
  Receipt Date: 20131104
  Transmission Date: 20140711
  Serious: Yes (Other)
  Sender: FDA-Public Use
  Company Number: DSU-2013-04949

PATIENT
  Age: 74 Year
  Sex: Male
  Weight: 77.11 kg

DRUGS (2)
  1. WELCHOL (COLESEVELAM HYDROCHLORIDE) (625 MILLIGRAM, TABLET) (COLESEVELAM HYDROCHLORIDE) [Suspect]
     Indication: HYPERLIPIDAEMIA
     Dates: end: 201310
  2. LIPITOR (ATORVASTATIN CALCIUM) [Suspect]
     Indication: HYPERLIPIDAEMIA

REACTIONS (1)
  - Parkinson^s disease [None]
